FAERS Safety Report 18930405 (Version 2)
Quarter: 2021Q2

REPORT INFORMATION
  Report Type: Spontaneous
  Country: CA (occurrence: CA)
  Receive Date: 20210224
  Receipt Date: 20210413
  Transmission Date: 20210717
  Serious: Yes (Other)
  Sender: FDA-Public Use
  Company Number: CA-CELLTRION INC.-2020CA024023

PATIENT

DRUGS (3)
  1. INFLECTRA [Suspect]
     Active Substance: INFLIXIMAB-DYYB
     Dosage: 500 MG Q (EVERY) 6WEEK
     Route: 042
     Dates: start: 20201223
  2. INFLECTRA [Suspect]
     Active Substance: INFLIXIMAB-DYYB
     Dosage: 500 MG Q (EVERY) 6WEEK
     Route: 042
     Dates: start: 20200520
  3. INFLECTRA [Suspect]
     Active Substance: INFLIXIMAB-DYYB
     Indication: COLITIS ULCERATIVE
     Dosage: 500 MG Q (EVERY) 6WEEK
     Route: 042
     Dates: start: 20200406

REACTIONS (9)
  - Pharyngeal swelling [Not Recovered/Not Resolved]
  - Vomiting [Recovered/Resolved]
  - SARS-CoV-2 test positive [Recovered/Resolved]
  - Pharyngitis [Unknown]
  - Oropharyngeal pain [Recovered/Resolved]
  - Off label use [Unknown]
  - Chills [Not Recovered/Not Resolved]
  - Ear infection [Unknown]
  - Pyrexia [Unknown]
